FAERS Safety Report 6617773-X (Version None)
Quarter: 2010Q1

REPORT INFORMATION
  Report Type: 
  Country: None (occurrence: None)
  Receive Date: 20100308
  Receipt Date: 20100302
  Transmission Date: 20100710
  Serious: Yes (Death, Hospitalization, Other)
  Sender: FDA-Public Use
  Company Number: PHHY2010IE11857

PATIENT
  Sex: Female

DRUGS (3)
  1. CLOZARIL [Suspect]
     Indication: PSYCHOTIC DISORDER
     Dosage: UNK
     Dates: start: 20040914
  2. CLOZARIL [Suspect]
     Dosage: 75 MG, QD
  3. CLOZARIL [Suspect]
     Dosage: UNK
     Dates: start: 20080109

REACTIONS (7)
  - ABDOMINAL DISTENSION [None]
  - DEATH [None]
  - DRUG INEFFECTIVE [None]
  - HYPOTENSION [None]
  - MALAISE [None]
  - PALLOR [None]
  - VOMITING [None]
